FAERS Safety Report 9519873 (Version 2)
Quarter: 2013Q4

REPORT INFORMATION
  Report Type: Spontaneous
  Country: US (occurrence: US)
  Receive Date: 20130912
  Receipt Date: 20131125
  Transmission Date: 20140711
  Serious: Yes (Hospitalization)
  Sender: FDA-Public Use
  Company Number: US-BAYER-2013-109704

PATIENT
  Age: 22 Year
  Sex: Female
  Weight: 82.99 kg

DRUGS (2)
  1. MIRENA [Suspect]
     Indication: CONTRACEPTION
     Dosage: 20 MCG/24HR, CONT
     Route: 015
     Dates: start: 20061116, end: 20080808
  2. FLAGYL [Concomitant]
     Dosage: 500 MG [TIMES] 4 TABLET

REACTIONS (10)
  - Uterine perforation [None]
  - Dysmenorrhoea [None]
  - Menstrual disorder [None]
  - Device difficult to use [None]
  - Pelvic pain [None]
  - Medical device pain [None]
  - Injury [None]
  - Device dislocation [None]
  - Depression [None]
  - Device issue [None]
